FAERS Safety Report 4566971-8 (Version None)
Quarter: 2005Q1

REPORT INFORMATION
  Report Type: 
  Country: None (occurrence: None)
  Receive Date: 20050201
  Receipt Date: 20040113
  Transmission Date: 20050727
  Serious: Yes (Other)
  Sender: FDA-Public Use
  Company Number: US-BRISTOL-MYERS SQUIBB COMPANY-12481230

PATIENT
  Sex: Female

DRUGS (22)
  1. STADOL [Suspect]
  2. ZANTAC [Concomitant]
  3. SPORANOX [Concomitant]
  4. BIAXIN [Concomitant]
  5. PHENERGAN VC PLAIN [Concomitant]
  6. LORAZEPAM [Concomitant]
  7. PROSOM [Concomitant]
  8. CHLORZOXAZONE [Concomitant]
  9. DECADRON [Concomitant]
  10. ZYRTEC [Concomitant]
  11. VANCENASE [Concomitant]
  12. ALLEGRA [Concomitant]
  13. VALIUM [Concomitant]
  14. AMBIEN [Concomitant]
  15. DESYREL DIVIDOSE 300 MG [Concomitant]
  16. FIORICET [Concomitant]
  17. DARVOCET [Concomitant]
  18. NUBAIN [Concomitant]
     Route: 030
  19. PERIACTIN [Concomitant]
  20. METHADONE HCL [Concomitant]
  21. CLONIDINE HCL [Concomitant]
  22. THORAZINE [Concomitant]

REACTIONS (2)
  - DEPENDENCE [None]
  - DRUG WITHDRAWAL SYNDROME [None]
